FAERS Safety Report 25535656 (Version 1)
Quarter: 2025Q3

REPORT INFORMATION
  Report Type: Spontaneous
  Country: US (occurrence: None)
  Receive Date: 20250709
  Receipt Date: 20250709
  Transmission Date: 20251021
  Serious: Yes (Hospitalization)
  Sender: FDA-CTU
  Company Number: None

PATIENT
  Age: 72 Year
  Sex: Male
  Weight: 75.105 kg

DRUGS (1)
  1. WELIREG [Suspect]
     Active Substance: BELZUTIFAN
     Indication: Renal cancer
     Dosage: 40 MG DAILY ORAL
     Route: 048
     Dates: start: 20240325

REACTIONS (2)
  - Haemorrhagic disorder [None]
  - Adverse drug reaction [None]

NARRATIVE: CASE EVENT DATE: 20250709
